FAERS Safety Report 4458007-4 (Version None)
Quarter: 2004Q3

REPORT INFORMATION
  Report Type: 
  Country: None (occurrence: None)
  Receive Date: 20040917
  Receipt Date: 20040427
  Transmission Date: 20050211
  Serious: Yes (Other)
  Sender: FDA-Public Use
  Company Number: US-JNJFOC-20040306638

PATIENT
  Age: 19 Year
  Sex: Female
  Weight: 79.3795 kg

DRUGS (7)
  1. TOPAMAX [Suspect]
     Indication: AFFECTIVE DISORDER
     Dosage: 150 MG ; 25 MG :  IN 1 DAY, ORAL
     Route: 048
     Dates: end: 20040327
  2. TOPAMAX [Suspect]
     Indication: BINGE EATING
     Dosage: 150 MG ; 25 MG :  IN 1 DAY, ORAL
     Route: 048
     Dates: end: 20040327
  3. TOPAMAX [Suspect]
     Indication: AFFECTIVE DISORDER
     Dosage: 150 MG ; 25 MG :  IN 1 DAY, ORAL
     Route: 048
     Dates: start: 20040206
  4. TOPAMAX [Suspect]
     Indication: BINGE EATING
     Dosage: 150 MG ; 25 MG :  IN 1 DAY, ORAL
     Route: 048
     Dates: start: 20040206
  5. LAMICTAL [Concomitant]
  6. XANAX [Concomitant]
  7. ABILIFY [Concomitant]

REACTIONS (1)
  - PCO2 DECREASED [None]
